FAERS Safety Report 21984451 (Version 1)
Quarter: 2023Q1

REPORT INFORMATION
  Report Type: Spontaneous
  Country: US (occurrence: US)
  Receive Date: 20230213
  Receipt Date: 20230213
  Transmission Date: 20230417
  Serious: Yes (Hospitalization, Other)
  Sender: FDA-Public Use
  Company Number: US-STERISCIENCE B.V.-2023-ST-000580

PATIENT
  Age: 37 Year
  Sex: Male
  Weight: 41 kg

DRUGS (16)
  1. MIDAZOLAM [Suspect]
     Active Substance: MIDAZOLAM
     Indication: General anaesthesia
     Dosage: 1 MILLIGRAM, INITIALLY
     Route: 042
  2. MIDAZOLAM [Suspect]
     Active Substance: MIDAZOLAM
     Dosage: 1 MILLIGRAM,GIVEN AFTER 15 MINUTES OF THE FIRST DOSE
     Route: 042
  3. MIDAZOLAM [Suspect]
     Active Substance: MIDAZOLAM
     Dosage: 1 MILLIGRAM,TO MAINTAIN THE SEDATION
     Route: 042
  4. LIDOCAINE [Suspect]
     Active Substance: LIDOCAINE
     Indication: Local anaesthesia
     Dosage: RECEIVED LIDOCAINE 1.8 ML ALONG WITH EPINEPHRINE ON FIRST APPOINTMENT VIA BUCCAL INJECTION
  5. LIDOCAINE [Suspect]
     Active Substance: LIDOCAINE
     Dosage: RECEIVED 3.6ML LIDOCAINE
     Route: 065
  6. ARTICAINE [Suspect]
     Active Substance: ARTICAINE
     Indication: Local anaesthesia
     Dosage: RECEIVED 3.6ML ARTICAINE ALONG WITH EPINEPHRINE
  7. ARTICAINE [Suspect]
     Active Substance: ARTICAINE
     Dosage: RECEIVED TWO DOSES OF 1.8ML OF ARTICAINE
     Route: 065
  8. PROPOFOL [Suspect]
     Active Substance: PROPOFOL
     Indication: General anaesthesia
     Dosage: 80 MILLIGRAM
     Route: 065
  9. PROPOFOL [Suspect]
     Active Substance: PROPOFOL
     Dosage: 50 MILLIGRAM
     Route: 065
  10. SUCCINYLCHOLINE [Suspect]
     Active Substance: SUCCINYLCHOLINE
     Indication: General anaesthesia
     Dosage: 80 MILLIGRAM
     Route: 065
  11. FLUMAZENIL [Concomitant]
     Active Substance: FLUMAZENIL
     Indication: Anaesthesia reversal
     Dosage: RECEIVED 2 DOSES
     Route: 042
  12. EPINEPHRINE [Concomitant]
     Active Substance: EPINEPHRINE
     Indication: Product used for unknown indication
     Dosage: LIDOCAINE WITH 1:100 000 EPINEPHRINE
  13. EPINEPHRINE [Concomitant]
     Active Substance: EPINEPHRINE
     Dosage: ARTICAINE WITH 1:100 000 EPINEPHRINE
  14. DOCUSATE [Concomitant]
     Active Substance: DOCUSATE
     Indication: Product used for unknown indication
     Dosage: UNK
  15. SENNA LEAF [Concomitant]
     Active Substance: SENNA LEAF
     Indication: Product used for unknown indication
     Dosage: UNK
  16. SODIUM CHLORIDE [Concomitant]
     Active Substance: SODIUM CHLORIDE
     Indication: Product used for unknown indication
     Dosage: UNK
     Route: 042

REACTIONS (2)
  - Electrocardiogram ST segment elevation [Recovered/Resolved]
  - Hypoxia [Unknown]
